FAERS Safety Report 8061973-1 (Version None)
Quarter: 2012Q1

REPORT INFORMATION
  Report Type: 
  Country: None (occurrence: None)
  Receive Date: 20120118
  Receipt Date: 20120111
  Transmission Date: 20120608
  Serious: Yes (Other)
  Sender: FDA-Public Use
  Company Number: JPI-P-015670

PATIENT
  Age: 54 Year
  Sex: Female
  Weight: 67.586 kg

DRUGS (10)
  1. OXYBUTYNIN CHLORIDE [Concomitant]
  2. ESOMEPRAZOLE MAGNESIUM [Concomitant]
  3. FEXOFENADINE HYDROCHLORIDE AND PSEUDOEPHEDRINE HYDROCHLORIDE [Concomitant]
  4. XYREM [Suspect]
     Indication: CATAPLEXY
     Dosage: ORAL ; 6 GM (3 GM,2 IN 1 D),ORAL
     Route: 048
     Dates: start: 20080827
  5. ESTRADIOL, NORETHINDRONE ACETATE [Concomitant]
  6. BUPROPION HYDROCHLORIDE [Concomitant]
  7. TRIAMTERENE AND HYDROCHLOROTHIAZIDE [Concomitant]
  8. ARMODAFINIL [Concomitant]
  9. METHYLPHENIDATE HCL [Concomitant]
  10. TERBINAFINE HCL [Concomitant]

REACTIONS (8)
  - FOOT DEFORMITY [None]
  - EPISTAXIS [None]
  - SINUSITIS [None]
  - WEIGHT INCREASED [None]
  - STRESS [None]
  - HYPERPHAGIA [None]
  - DYSGEUSIA [None]
  - PYREXIA [None]
